FAERS Safety Report 16482608 (Version 1)
Quarter: 2019Q2

REPORT INFORMATION
  Report Type: Spontaneous
  Country: US (occurrence: US)
  Receive Date: 20190627
  Receipt Date: 20190627
  Transmission Date: 20190711
  Serious: Yes (Hospitalization, Other)
  Sender: FDA-Public Use
  Company Number: PHHY2019US144783

PATIENT
  Age: 59 Year
  Sex: Male

DRUGS (1)
  1. PREDNISONE. [Suspect]
     Active Substance: PREDNISONE
     Indication: RHEUMATOID ARTHRITIS
     Dosage: 20 MG, QD (FOR MORE THAN 3 YEARS)
     Route: 065

REACTIONS (15)
  - Peripheral swelling [Recovered/Resolved]
  - Deep vein thrombosis [Recovered/Resolved]
  - Blood lactic acid increased [Unknown]
  - Soft tissue swelling [Recovered/Resolved]
  - Erysipelothrix infection [Recovered/Resolved]
  - Dyspnoea [Recovered/Resolved]
  - Ulcer [Recovered/Resolved]
  - White blood cell count increased [Unknown]
  - Bronchiolitis [Recovered/Resolved]
  - Endocarditis bacterial [Recovered/Resolved]
  - Pyrexia [Recovered/Resolved]
  - Tachycardia [Recovered/Resolved]
  - Erythema [Recovered/Resolved]
  - Bacteraemia [Recovered/Resolved]
  - Mitral valve incompetence [Recovered/Resolved]
